FAERS Safety Report 22225782 (Version 2)
Quarter: 2023Q2

REPORT INFORMATION
  Report Type: Spontaneous
  Country: GB (occurrence: GB)
  Receive Date: 20230418
  Receipt Date: 20230424
  Transmission Date: 20230721
  Serious: Yes (Other)
  Sender: FDA-Public Use
  Company Number: GB-BIOGEN-2023BI01185296

PATIENT
  Age: 61 Year
  Sex: Female

DRUGS (2)
  1. PLEGRIDY [Suspect]
     Active Substance: PEGINTERFERON BETA-1A
     Indication: Multiple sclerosis
     Dosage: 125MCG / 0.5ML
     Route: 050
     Dates: start: 2021
  2. SUMATRIPTAN [Concomitant]
     Active Substance: SUMATRIPTAN
     Indication: Product used for unknown indication
     Route: 050

REACTIONS (11)
  - Loss of control of legs [Unknown]
  - Musculoskeletal disorder [Unknown]
  - Feeling hot [Unknown]
  - Rash pruritic [Unknown]
  - Rash erythematous [Unknown]
  - Malaise [Unknown]
  - Fall [Recovered/Resolved]
  - Hypoaesthesia [Unknown]
  - Rash [Unknown]
  - Pruritus [Unknown]
  - Asthenia [Unknown]

NARRATIVE: CASE EVENT DATE: 20230127
